FAERS Safety Report 10570391 (Version 1)
Quarter: 2014Q4

REPORT INFORMATION
  Report Type: Spontaneous
  Country: US (occurrence: US)
  Receive Date: 20141107
  Receipt Date: 20141107
  Transmission Date: 20150529
  Serious: Yes (Other)
  Sender: FDA-Public Use
  Company Number: US-GE HEALTHCARE MEDICAL DIAGNOSTICS-CRTC-PR-1410S-0014

PATIENT
  Age: 52 Year
  Sex: Female

DRUGS (4)
  1. CEFEPIME [Concomitant]
     Active Substance: CEFEPIME\CEFEPIME HYDROCHLORIDE
     Indication: INFECTION
     Route: 042
     Dates: start: 20141025, end: 20141025
  2. CERETEC [Suspect]
     Active Substance: EXAMETAZIME\TECHNETIUM TC-99M EXAMETAZIME
     Indication: DIAGNOSTIC PROCEDURE
  3. LOVENOX [Concomitant]
     Active Substance: ENOXAPARIN SODIUM
     Indication: PRODUCT USED FOR UNKNOWN INDICATION
  4. CERETEC [Suspect]
     Active Substance: EXAMETAZIME\TECHNETIUM TC-99M EXAMETAZIME
     Indication: INFECTION
     Route: 042
     Dates: start: 20141027, end: 20141027

REACTIONS (1)
  - Rash generalised [Recovered/Resolved]

NARRATIVE: CASE EVENT DATE: 20141027
